FAERS Safety Report 10252997 (Version 3)
Quarter: 2015Q1

REPORT INFORMATION
  Report Type: Report from Study
  Country: MX (occurrence: MX)
  Receive Date: 20140623
  Receipt Date: 20150309
  Transmission Date: 20150720
  Serious: Yes (Death, Hospitalization)
  Sender: FDA-Public Use
  Company Number: MX-ACTELION-A-CH2014-100250

PATIENT
  Age: 45 Year
  Sex: Male
  Weight: 82 kg

DRUGS (7)
  1. SPIRONOLACTONE. [Concomitant]
     Active Substance: SPIRONOLACTONE
     Dosage: UNK
     Dates: start: 20130509
  2. NIFEDIPINE. [Concomitant]
     Active Substance: NIFEDIPINE
     Dosage: UNK
     Dates: start: 200802
  3. SILDENAFIL. [Concomitant]
     Active Substance: SILDENAFIL
     Dosage: UNK
     Dates: start: 20080814
  4. DIGOXINE [Concomitant]
     Active Substance: DIGOXIN
     Dosage: UNK
     Dates: start: 200802
  5. WARFARIN [Concomitant]
     Active Substance: WARFARIN
     Dosage: UNK
     Dates: start: 200806
  6. FUROSEMIDE. [Concomitant]
     Active Substance: FUROSEMIDE
     Dosage: UNK
     Dates: start: 20130307
  7. MACITENTAN [Suspect]
     Active Substance: MACITENTAN
     Indication: PULMONARY ARTERIAL HYPERTENSION
     Dosage: 10 MG, QD
     Route: 048
     Dates: start: 20081021, end: 20140612

REACTIONS (20)
  - Septic shock [Fatal]
  - Dyspnoea [Fatal]
  - Pyrexia [Unknown]
  - Acute kidney injury [Unknown]
  - Diarrhoea [Unknown]
  - Jugular vein distension [Fatal]
  - Hypotension [Fatal]
  - Oedema peripheral [Unknown]
  - Cardio-respiratory arrest [Fatal]
  - Oxygen saturation decreased [Fatal]
  - Blood creatinine increased [Unknown]
  - Right ventricular failure [Fatal]
  - Condition aggravated [Fatal]
  - Hepatomegaly [Fatal]
  - Pneumonia [Unknown]
  - Thrombocytopenia [Unknown]
  - Oliguria [Unknown]
  - Cardiogenic shock [Fatal]
  - Erysipelas [Unknown]
  - Gastroenteritis Escherichia coli [Unknown]

NARRATIVE: CASE EVENT DATE: 20130609
